FAERS Safety Report 5737806-2 (Version None)
Quarter: 2008Q2

REPORT INFORMATION
  Report Type: 
  Country: None (occurrence: None)
  Receive Date: 20080513
  Receipt Date: 20080513
  Transmission Date: 20081010
  Serious: Yes (Death, Hospitalization)
  Sender: FDA-Public Use
  Company Number: None

PATIENT

DRUGS (1)
  1. DIGOXIN [Suspect]

REACTIONS (20)
  - ACTIVITIES OF DAILY LIVING IMPAIRED [None]
  - ASTHENIA [None]
  - BALANCE DISORDER [None]
  - CARDIAC ARREST [None]
  - CONDITION AGGRAVATED [None]
  - DEPRESSED LEVEL OF CONSCIOUSNESS [None]
  - DIARRHOEA [None]
  - DRUG TOXICITY [None]
  - DYSPNOEA [None]
  - GAIT DISTURBANCE [None]
  - GENERAL PHYSICAL HEALTH DETERIORATION [None]
  - HEART RATE DECREASED [None]
  - HEART RATE IRREGULAR [None]
  - LETHARGY [None]
  - NAUSEA [None]
  - NERVOUS SYSTEM DISORDER [None]
  - RENAL DISORDER [None]
  - SLEEP DISORDER [None]
  - SOMNOLENCE [None]
  - VISUAL DISTURBANCE [None]
